FAERS Safety Report 4725951-X (Version None)
Quarter: 2005Q3

REPORT INFORMATION
  Report Type: 
  Country: None (occurrence: None)
  Receive Date: 20050727
  Receipt Date: 20050725
  Transmission Date: 20060218
  Serious: Yes (Other)
  Sender: FDA-Public Use
  Company Number: US-GLAXOSMITHKLINE-A0567574A

PATIENT
  Age: 53 Year
  Sex: Female

DRUGS (6)
  1. ESKALITH [Suspect]
     Dosage: 750MG PER DAY
     Route: 048
  2. SEROQUEL [Concomitant]
  3. EFFEXOR [Concomitant]
  4. ATIVAN [Concomitant]
  5. CISPLATIN [Concomitant]
  6. GEMCITABINE [Concomitant]

REACTIONS (2)
  - LUNG NEOPLASM MALIGNANT [None]
  - TREMOR [None]
